FAERS Safety Report 5674525-5 (Version None)
Quarter: 2008Q1

REPORT INFORMATION
  Report Type: 
  Country: None (occurrence: None)
  Receive Date: 20080320
  Receipt Date: 20080310
  Transmission Date: 20080703
  Serious: Yes (Life-Threatening, Hospitalization, Disabling, Other)
  Sender: FDA-Public Use
  Company Number: GB-ASTRAZENECA-2008AP01958

PATIENT
  Age: 25257 Day
  Sex: Female

DRUGS (9)
  1. ARIMIDEX [Suspect]
     Indication: PROPHYLAXIS
     Dates: start: 20061017
  2. PLACEBO [Suspect]
     Dates: start: 20061017
  3. CALCIUM + VITAMIN D [Suspect]
     Dates: start: 20071017
  4. LOPERAMIDE HCL [Concomitant]
  5. TRAMADOL HCL [Concomitant]
  6. PARACETAMOL [Concomitant]
  7. CALCIUM [Concomitant]
  8. GAVISCON [Concomitant]
  9. ATENOLOL [Concomitant]

REACTIONS (2)
  - HUMERUS FRACTURE [None]
  - NORMAL PRESSURE HYDROCEPHALUS [None]
